FAERS Safety Report 4429672-2 (Version None)
Quarter: 2004Q3

REPORT INFORMATION
  Report Type: 
  Country: None (occurrence: None)
  Receive Date: 20040819
  Receipt Date: 20040811
  Transmission Date: 20050211
  Serious: Yes (Life-Threatening, Hospitalization)
  Sender: FDA-Public Use
  Company Number: US-MERCK-0408USA01036

PATIENT
  Sex: Female

DRUGS (2)
  1. PRILOSEC [Concomitant]
     Route: 065
  2. VIOXX [Suspect]
     Indication: GOUTY ARTHRITIS
     Route: 048

REACTIONS (2)
  - GASTRIC ULCER PERFORATION [None]
  - HAEMORRHAGE [None]
